FAERS Safety Report 6544020-X (Version None)
Quarter: 2010Q1

REPORT INFORMATION
  Report Type: 
  Country: None (occurrence: None)
  Receive Date: 20100119
  Receipt Date: 20100119
  Transmission Date: 20100710
  Serious: Yes (Other)
  Sender: FDA-Public Use
  Company Number: None

PATIENT
  Age: 9 Year
  Sex: Male
  Weight: 18.1439 kg

DRUGS (1)
  1. TYLENOL [Suspect]
     Indication: ARTHRALGIA
     Dosage: 1 TABLET PRN OTHER
     Route: 050
     Dates: start: 20091203, end: 20100107

REACTIONS (3)
  - ARTHRALGIA [None]
  - HAEMATEMESIS [None]
  - PALLOR [None]
